FAERS Safety Report 8209816-7 (Version None)
Quarter: 2012Q1

REPORT INFORMATION
  Report Type: 
  Country: None (occurrence: None)
  Receive Date: 20120314
  Receipt Date: 20120305
  Transmission Date: 20120608
  Serious: Yes (Hospitalization)
  Sender: FDA-Public Use
  Company Number: FR-ASTRAZENECA-2012SE16621

PATIENT
  Age: 63 Year
  Sex: Male

DRUGS (5)
  1. DIAMICRON LM [Suspect]
     Route: 048
     Dates: start: 20120207, end: 20120210
  2. ASPIRIN [Concomitant]
     Dates: start: 20120208
  3. LANTUS [Suspect]
     Route: 058
     Dates: start: 20120101, end: 20120206
  4. CRESTOR [Suspect]
     Route: 048
     Dates: start: 20120208, end: 20120209
  5. NOVORAPID [Concomitant]
     Dates: start: 20120207

REACTIONS (2)
  - PYREXIA [None]
  - AGRANULOCYTOSIS [None]
